FAERS Safety Report 17564931 (Version 1)
Quarter: 2020Q1

REPORT INFORMATION
  Report Type: Spontaneous
  Country: US (occurrence: US)
  Receive Date: 20200320
  Receipt Date: 20200320
  Transmission Date: 20200409
  Serious: No
  Sender: FDA-Public Use
  Company Number: US-SA-2020SA064018

PATIENT
  Sex: Female

DRUGS (1)
  1. DUPIXENT [Suspect]
     Active Substance: DUPILUMAB
     Indication: DERMATITIS ATOPIC
     Dosage: 300 MG
     Route: 058
     Dates: start: 201908, end: 20200129

REACTIONS (5)
  - Arthralgia [Unknown]
  - Vision blurred [Unknown]
  - Eyelid infection [Unknown]
  - Weight increased [Unknown]
  - Oral herpes [Unknown]
